FAERS Safety Report 10380298 (Version 1)
Quarter: 2014Q3

REPORT INFORMATION
  Report Type: Spontaneous
  Country: US (occurrence: None)
  Receive Date: 20140812
  Receipt Date: 20140812
  Transmission Date: 20150326
  Serious: Yes (Other)
  Sender: FDA-Public Use
  Company Number: None

PATIENT
  Age: 85 Year
  Sex: Female

DRUGS (21)
  1. ALBUTEROL. [Concomitant]
     Active Substance: ALBUTEROL
  2. CLARITON [Concomitant]
  3. GLIMEPIRIDE TABLET 4MG 1TABLET EVERY 12 HRS [Suspect]
     Active Substance: GLIMEPIRIDE
     Indication: DIABETES MELLITUS
     Dosage: 186 TWICE DAILY BY MOUTH
     Route: 048
     Dates: start: 20140620, end: 20140628
  4. PRYLOSEC [Concomitant]
  5. VITAMIN B12 [Concomitant]
     Active Substance: CYANOCOBALAMIN
  6. C [Concomitant]
  7. PROTEIN SHAKE WHEY [Concomitant]
  8. AMLODIPINE [Concomitant]
     Active Substance: AMLODIPINE BESYLATE
  9. NITROGLYCERIN. [Concomitant]
     Active Substance: NITROGLYCERIN
  10. NASALCORT [Concomitant]
  11. LASIX [Concomitant]
     Active Substance: FUROSEMIDE
  12. SYNTHROID [Concomitant]
     Active Substance: LEVOTHYROXINE SODIUM
  13. MINOCYCLINE [Concomitant]
     Active Substance: MINOCYCLINE\MINOCYCLINE HYDROCHLORIDE
  14. VITAMIN E [Concomitant]
     Active Substance: .ALPHA.-TOCOPHEROL
  15. LISINIPRIL [Concomitant]
  16. TRENTOL [Concomitant]
  17. GLIMEPIRIDE. [Concomitant]
     Active Substance: GLIMEPIRIDE
  18. SPIRIVA [Concomitant]
     Active Substance: TIOTROPIUM BROMIDE MONOHYDRATE
  19. RESTASIS [Concomitant]
     Active Substance: CYCLOSPORINE
  20. FISH OIL [Concomitant]
     Active Substance: FISH OIL
  21. ASPIRIN. [Concomitant]
     Active Substance: ASPIRIN

REACTIONS (4)
  - Dizziness [None]
  - Product substitution issue [None]
  - Listless [None]
  - Blood glucose decreased [None]

NARRATIVE: CASE EVENT DATE: 20140620
